FAERS Safety Report 19580954 (Version 1)
Quarter: 2021Q3

REPORT INFORMATION
  Report Type: Spontaneous
  Country: US (occurrence: US)
  Receive Date: 20210719
  Receipt Date: 20210719
  Transmission Date: 20211014
  Serious: No
  Sender: FDA-Public Use
  Company Number: None

PATIENT
  Sex: Female

DRUGS (17)
  1. SPIRONOLACTONE. [Concomitant]
     Active Substance: SPIRONOLACTONE
  2. VITAMIN A [Concomitant]
     Active Substance: VITAMIN A
  3. CAREALL ASPIRIN [Concomitant]
     Active Substance: ASPIRIN
  4. ADEMPAS [Concomitant]
     Active Substance: RIOCIGUAT
  5. MELOXICAM. [Concomitant]
     Active Substance: MELOXICAM
  6. TOPIRAMATE. [Concomitant]
     Active Substance: TOPIRAMATE
  7. POTASSIUM CHLORIDE. [Concomitant]
     Active Substance: POTASSIUM CHLORIDE
  8. LOSARTAN POTASSIUM. [Concomitant]
     Active Substance: LOSARTAN POTASSIUM
  9. ALBUTEROL. [Concomitant]
     Active Substance: ALBUTEROL
  10. POTASSIMIN [Concomitant]
  11. FUROSEMIDE. [Concomitant]
     Active Substance: FUROSEMIDE
  12. MAGNESIUM CITRATE. [Concomitant]
     Active Substance: MAGNESIUM CITRATE
  13. ATORVASTATIN CALCIUM. [Concomitant]
     Active Substance: ATORVASTATIN CALCIUM
  14. AMBRISENTAN [Suspect]
     Active Substance: AMBRISENTAN
     Indication: PULMONARY ARTERIAL HYPERTENSION
     Route: 048
  15. IPRATROPIUM BROMIDE. [Concomitant]
     Active Substance: IPRATROPIUM BROMIDE
  16. FAMOTIDINE. [Concomitant]
     Active Substance: FAMOTIDINE
  17. MAGNESIUM OXIDE 400 [Concomitant]

REACTIONS (1)
  - Dyspepsia [None]
